FAERS Safety Report 21979283 (Version 2)
Quarter: 2023Q2

REPORT INFORMATION
  Report Type: Report from Study
  Country: BR (occurrence: BR)
  Receive Date: 20230210
  Receipt Date: 20230404
  Transmission Date: 20230722
  Serious: Yes (Death, Life-Threatening, Hospitalization, Disabling, Other)
  Sender: FDA-Public Use
  Company Number: BR-BAXTER-2023BAX011997

PATIENT
  Age: 22 Year
  Sex: Male
  Weight: 52.3 kg

DRUGS (18)
  1. CYCLOPHOSPHAMIDE [Suspect]
     Active Substance: CYCLOPHOSPHAMIDE
     Indication: Chemotherapy
     Dosage: 400 MG, ONCE, REGIMEN 1
     Route: 065
     Dates: start: 20201229, end: 20201229
  2. CYCLOPHOSPHAMIDE [Suspect]
     Active Substance: CYCLOPHOSPHAMIDE
     Dosage: 400 MG, ONCE, REGIMEN 2
     Route: 065
     Dates: start: 20201230, end: 20201230
  3. CYCLOPHOSPHAMIDE [Suspect]
     Active Substance: CYCLOPHOSPHAMIDE
     Dosage: 400 MG, ONCE, REGIMEN 3
     Route: 065
     Dates: start: 20201231, end: 20201231
  4. CYCLOPHOSPHAMIDE [Suspect]
     Active Substance: CYCLOPHOSPHAMIDE
     Indication: Lymphoma
     Dosage: UNK
     Route: 065
     Dates: start: 20191105, end: 20200414
  5. DOXORUBICIN [Suspect]
     Active Substance: DOXORUBICIN
     Indication: Lymphoma
     Dosage: UNK
     Route: 065
     Dates: start: 20191105, end: 20200414
  6. RITUXIMAB [Suspect]
     Active Substance: RITUXIMAB
     Indication: Plasma cell myeloma refractory
     Dosage: 611 MG, QD, REGIMEN 1
     Route: 042
     Dates: start: 20200914
  7. OXALIPLATIN [Suspect]
     Active Substance: OXALIPLATIN
     Indication: Plasma cell myeloma refractory
     Dosage: 163 MG, QD, REGIMEN 1
     Route: 042
     Dates: start: 20200914
  8. GEMCITABINE [Suspect]
     Active Substance: GEMCITABINE
     Indication: Plasma cell myeloma refractory
     Dosage: 1630 MG, ONCE, REGIMEN 1
     Route: 042
     Dates: start: 20200914
  9. IBRUTINIB [Suspect]
     Active Substance: IBRUTINIB
     Indication: Plasma cell myeloma refractory
     Dosage: 17220 MG, QD, REGIMEN 1
     Route: 048
     Dates: start: 20201103, end: 20201214
  10. FLUDARABINE PHOSPHATE [Suspect]
     Active Substance: FLUDARABINE PHOSPHATE
     Indication: Chemotherapy
     Dosage: 40 MG, ONCE, REGIMEN 1
     Route: 065
     Dates: start: 20201229, end: 20201229
  11. FLUDARABINE PHOSPHATE [Suspect]
     Active Substance: FLUDARABINE PHOSPHATE
     Dosage: 40 MG, ONCE, REGIMEN 2
     Route: 065
     Dates: start: 20201230, end: 20201230
  12. FLUDARABINE PHOSPHATE [Suspect]
     Active Substance: FLUDARABINE PHOSPHATE
     Dosage: 40 MG, ONCE, REGIMEN 3
     Route: 065
     Dates: start: 20201231, end: 20201231
  13. ERYTHROPOIETIN [Concomitant]
     Active Substance: ERYTHROPOIETIN
     Dosage: UNK
     Route: 065
     Dates: start: 20201218, end: 20201228
  14. FOLIC ACID [Concomitant]
     Active Substance: FOLIC ACID
     Dosage: UNK
     Route: 065
     Dates: start: 20201218, end: 20201228
  15. VITAMIN B COMPLEX [Concomitant]
     Active Substance: CYANOCOBALAMIN\DEXPANTHENOL\NIACINAMIDE\PYRIDOXINE HYDROCHLORIDE\RIBOFLAVIN 5^-PHOSPHATE SODIUM\THIA
     Dosage: UNK
     Route: 065
     Dates: start: 20201218, end: 20201228
  16. TEICOPLANIN [Concomitant]
     Active Substance: TEICOPLANIN
     Dosage: UNK
     Route: 065
     Dates: start: 20210101, end: 20210111
  17. NOREPINEPHRINE [Concomitant]
     Active Substance: NOREPINEPHRINE
     Dosage: UNK
     Route: 065
     Dates: start: 20210108, end: 20210112
  18. CEFEPIME [Concomitant]
     Active Substance: CEFEPIME HYDROCHLORIDE
     Dosage: UNK
     Route: 065
     Dates: start: 20210103, end: 20210105

REACTIONS (6)
  - Systemic inflammatory response syndrome [Recovered/Resolved]
  - Hyperbilirubinaemia [Not Recovered/Not Resolved]
  - Respiratory failure [Not Recovered/Not Resolved]
  - Acute respiratory failure [Fatal]
  - Febrile neutropenia [Recovered/Resolved]
  - Hypotension [Not Recovered/Not Resolved]

NARRATIVE: CASE EVENT DATE: 20210103
